FAERS Safety Report 15315989 (Version 1)
Quarter: 2018Q3

REPORT INFORMATION
  Report Type: Spontaneous
  Country: US (occurrence: US)
  Receive Date: 20180816
  Receipt Date: 20180816
  Transmission Date: 20181010
  Serious: Yes (Other)
  Sender: FDA-Public Use
  Company Number: None

PATIENT
  Age: 86 Year
  Sex: Female
  Weight: 71 kg

DRUGS (10)
  1. ANDEXXA [Suspect]
     Active Substance: ANDEXANET ALFA
     Indication: PROCOAGULANT THERAPY
     Dosage: ?          OTHER FREQUENCY:BOLUS + INFUSION;?
     Route: 040
     Dates: start: 20180807, end: 20180807
  2. LISINOPRIL 10 MG PO [Concomitant]
     Dates: start: 20180807, end: 20180807
  3. NORMAL SALINE [Concomitant]
     Active Substance: SODIUM CHLORIDE
     Dates: start: 20180807, end: 20180807
  4. FENTANYL 25 MCG IV [Concomitant]
     Dates: start: 20180807, end: 20180807
  5. METOPROLOL TARTRATE 2.5 MG IV [Concomitant]
     Dates: start: 20180807, end: 20180807
  6. TDAP 0.5 ML IM [Concomitant]
     Dates: start: 20180807, end: 20180807
  7. HYDROCHLOROTHIAZIDE 12.5 MG PO [Concomitant]
     Dates: start: 20180807, end: 20180807
  8. CEFAZOLIN 2 G IV [Concomitant]
     Dates: start: 20180807, end: 20180807
  9. ACETAMINOPHEN 650 MG PO [Concomitant]
     Dates: start: 20180807, end: 20180807
  10. LABETALOL 10 MG IV [Concomitant]
     Dates: start: 20180807, end: 20180807

REACTIONS (10)
  - NIH stroke scale score increased [None]
  - Condition aggravated [None]
  - Disorientation [None]
  - Lethargy [None]
  - Brain contusion [None]
  - Coma scale abnormal [None]
  - Cognitive disorder [None]
  - Confusional state [None]
  - Cerebral haemorrhage [None]
  - Brain oedema [None]

NARRATIVE: CASE EVENT DATE: 20180807
